FAERS Safety Report 18631365 (Version 1)
Quarter: 2020Q4

REPORT INFORMATION
  Report Type: Spontaneous
  Country: CA (occurrence: CA)
  Receive Date: 20201218
  Receipt Date: 20201218
  Transmission Date: 20210114
  Serious: Yes (Other)
  Sender: FDA-Public Use
  Company Number: CA-PFIZER INC-2020496200

PATIENT
  Age: 65 Year
  Sex: Male
  Weight: 90.7 kg

DRUGS (5)
  1. METHOTREXATE SODIUM. [Suspect]
     Active Substance: METHOTREXATE SODIUM
     Indication: CROHN^S DISEASE
     Dosage: 25 MG, WEEKLY
     Route: 030
  2. FOLIC ACID. [Concomitant]
     Active Substance: FOLIC ACID
     Dosage: UNK
  3. HUMALOG [Concomitant]
     Active Substance: INSULIN LISPRO
     Dosage: 37 UNITS, 2X/DAY
  4. RAMIPRIL. [Concomitant]
     Active Substance: RAMIPRIL
     Dosage: 10 MG, 1X/DAY
  5. HUMALOG [Concomitant]
     Active Substance: INSULIN LISPRO
     Dosage: 10 MG, DAILY

REACTIONS (3)
  - Condition aggravated [Unknown]
  - Off label use [Unknown]
  - Immunodeficiency [Unknown]
